FAERS Safety Report 5475187-2 (Version None)
Quarter: 2007Q4

REPORT INFORMATION
  Report Type: 
  Country: None (occurrence: None)
  Receive Date: 20071002
  Receipt Date: 20070920
  Transmission Date: 20080405
  Serious: Yes (Other)
  Sender: FDA-Public Use
  Company Number: GB-PFIZER INC-2007078857

PATIENT
  Age: 29 Year
  Sex: Female
  Weight: 75 kg

DRUGS (3)
  1. VARENICLINE TABLETS [Suspect]
     Indication: EX-SMOKER
     Route: 048
     Dates: start: 20070618, end: 20070621
  2. FLUOXETINE [Concomitant]
     Indication: DEPRESSION
     Route: 048
  3. OTHER DERMATOLOGICAL PREPARATIONS [Concomitant]
     Indication: ECZEMA

REACTIONS (2)
  - DISTURBANCE IN ATTENTION [None]
  - ROAD TRAFFIC ACCIDENT [None]
